FAERS Safety Report 10478666 (Version 3)
Quarter: 2014Q4

REPORT INFORMATION
  Report Type: Not Available
  Country: IT (occurrence: IT)
  Receive Date: 20140926
  Receipt Date: 20141222
  Transmission Date: 20150528
  Serious: Yes (Hospitalization)
  Sender: FDA-Public Use
  Company Number: IT-MUNDIPHARMA DS AND PHARMACOVIGILANCE-GBR-2014-0022036

PATIENT
  Age: 83 Year
  Sex: Female

DRUGS (9)
  1. LOSARTAN [Concomitant]
     Active Substance: LOSARTAN
     Dosage: 100 MG, UNK
     Route: 048
  2. COUMADIN [Suspect]
     Active Substance: WARFARIN SODIUM
     Indication: ATRIAL FIBRILLATION
     Dosage: 13.75MG/WEEKLY
     Route: 048
     Dates: start: 20120101
  3. CARDURA [Concomitant]
     Active Substance: DOXAZOSIN MESYLATE
     Dosage: 2 MG, UNK
     Route: 048
  4. VERUM [Concomitant]
     Indication: CONSTIPATION
     Dosage: UNK
  5. CORDARONE [Concomitant]
     Active Substance: AMIODARONE HYDROCHLORIDE
     Dosage: 200 MG, UNK
     Route: 048
  6. EUDIGOX [Concomitant]
     Dosage: 0.2 MG, UNK
     Route: 048
  7. ARCOXIA [Suspect]
     Active Substance: ETORICOXIB
     Indication: MUSCULOSKELETAL PAIN
     Dosage: 60MG, 2 POSOLOGIC UNIT DAILY
     Route: 048
     Dates: start: 20140819, end: 20140825
  8. CRESTOR [Concomitant]
     Active Substance: ROSUVASTATIN CALCIUM
     Dosage: 10 MG, ALTERNATE DAYS
     Route: 048
  9. TARGIN COMPRESSA A RILASCIO PROLUNGATO CONTIENE 5MG/2,5MG [Suspect]
     Active Substance: NALOXONE HYDROCHLORIDE\OXYCODONE HYDROCHLORIDE
     Indication: MUSCULOSKELETAL PAIN
     Dosage: 5MG/2.5MG, 4 POSOLOGIC UNIT DAILY
     Route: 048
     Dates: start: 20140830, end: 20140905

REACTIONS (3)
  - Periorbital haematoma [Recovering/Resolving]
  - International normalised ratio increased [Recovering/Resolving]
  - Fall [Recovering/Resolving]

NARRATIVE: CASE EVENT DATE: 20140909
